FAERS Safety Report 9334855 (Version 1)
Quarter: 2013Q2

REPORT INFORMATION
  Report Type: Spontaneous
  Country: US (occurrence: US)
  Receive Date: 20130606
  Receipt Date: 20130606
  Transmission Date: 20140414
  Serious: No
  Sender: FDA-Public Use
  Company Number: US-AMGEN-USASP2013036355

PATIENT
  Age: 58 Year
  Sex: Female

DRUGS (6)
  1. PROLIA [Suspect]
     Indication: OSTEOPOROSIS POSTMENOPAUSAL
     Dosage: UNK
     Dates: start: 201212
  2. NEXIUM                             /01479303/ [Concomitant]
  3. COENZYME Q10 [Concomitant]
  4. CALCIUM [Concomitant]
  5. VITAMIN D                          /00107901/ [Concomitant]
  6. VITAMIN B6 [Concomitant]

REACTIONS (3)
  - Mobility decreased [Recovered/Resolved]
  - Back pain [Recovered/Resolved]
  - Musculoskeletal pain [Recovered/Resolved]
